FAERS Safety Report 8914849 (Version 2)
Quarter: 2013Q1

REPORT INFORMATION
  Report Type: Spontaneous
  Country: DE (occurrence: DE)
  Receive Date: 20121119
  Receipt Date: 20130208
  Transmission Date: 20140127
  Serious: Yes (Other)
  Sender: FDA-Public Use
  Company Number: DE-BAYER-2012-120367

PATIENT
  Sex: Male
  Weight: 75 kg

DRUGS (2)
  1. LEVITRA [Suspect]
     Indication: ERECTILE DYSFUNCTION
     Dosage: 10 MG, ONCE
     Route: 048
     Dates: start: 20121110, end: 20121110
  2. RAMIPRIL [RAMIPRIL] [Concomitant]
     Indication: HYPERTENSION

REACTIONS (5)
  - Visual impairment [Not Recovered/Not Resolved]
  - Vitreous haemorrhage [Recovering/Resolving]
  - Retinal detachment [Recovered/Resolved]
  - Visual field defect [Recovered/Resolved]
  - Vision blurred [Recovered/Resolved]
